FAERS Safety Report 21378249 (Version 1)
Quarter: 2022Q3

REPORT INFORMATION
  Report Type: Spontaneous
  Country: CH (occurrence: CH)
  Receive Date: 20220927
  Receipt Date: 20220927
  Transmission Date: 20221026
  Serious: Yes (Other)
  Sender: FDA-Public Use
  Company Number: CH-ABBVIE-4130515

PATIENT
  Age: 27 Year
  Sex: Female

DRUGS (1)
  1. RINVOQ [Suspect]
     Active Substance: UPADACITINIB
     Indication: Juvenile idiopathic arthritis
     Route: 048
     Dates: start: 202108, end: 2022

REACTIONS (2)
  - Acute myocardial infarction [Unknown]
  - Venous stenosis [Unknown]

NARRATIVE: CASE EVENT DATE: 20220501
